FAERS Safety Report 7555133-8 (Version None)
Quarter: 2011Q2

REPORT INFORMATION
  Report Type: 
  Country: None (occurrence: None)
  Receive Date: 20110617
  Receipt Date: 20110608
  Transmission Date: 20111010
  Serious: Yes (Hospitalization)
  Sender: FDA-Public Use
  Company Number: US-UCBSA-027997

PATIENT
  Sex: Female
  Weight: 67.7 kg

DRUGS (6)
  1. MULTI-VITAMINS [Concomitant]
     Indication: MEDICAL DIET
     Dosage: 1 TABLET ONCE DAILY
     Route: 061
     Dates: start: 20100201
  2. CERTOLIZUMAB PEGOL [Suspect]
     Indication: CROHN'S DISEASE
     Dosage: C87035:  NO. OF DOSES RECEIVED:3
     Route: 058
  3. PREDNISONE [Concomitant]
     Indication: CROHN'S DISEASE
     Route: 048
     Dates: start: 20110218, end: 20110219
  4. CERTOLIZUMAB PEGOL [Suspect]
     Dosage: C87035: 400 MG OR 200 MG ONCE EVERY ONE MONTH
     Route: 058
  5. CERTOLIZUMAB PEGOL [Suspect]
     Dosage: NBR OF DOSES: 7
     Route: 058
     Dates: start: 20100831, end: 20110208
  6. NEXIUM [Concomitant]
     Indication: GASTROOESOPHAGEAL REFLUX DISEASE
     Route: 048
     Dates: start: 20101101

REACTIONS (2)
  - SMALL INTESTINAL OBSTRUCTION [None]
  - GASTRITIS VIRAL [None]
